FAERS Safety Report 9025439 (Version 1)
Quarter: 2013Q1

REPORT INFORMATION
  Report Type: Spontaneous
  Country: GB (occurrence: DE)
  Receive Date: 20130122
  Receipt Date: 20130122
  Transmission Date: 20140127
  Serious: Yes (Other)
  Sender: FDA-Public Use
  Company Number: DE-B.I. PHARMACEUTICALS,INC./RIDGEFIELD-2013-DE-00130DE

PATIENT
  Sex: 0

DRUGS (2)
  1. PRADAXA [Suspect]
  2. JANUVIA [Concomitant]

REACTIONS (1)
  - Jaundice [Unknown]
